FAERS Safety Report 4642404-8 (Version None)
Quarter: 2005Q2

REPORT INFORMATION
  Report Type: 
  Country: None (occurrence: None)
  Receive Date: 20050422
  Receipt Date: 20041207
  Transmission Date: 20051028
  Serious: Yes (Hospitalization)
  Sender: FDA-Public Use
  Company Number: IT-BRISTOL-MYERS SQUIBB COMPANY-12786778

PATIENT
  Age: 44 Year
  Sex: Male

DRUGS (6)
  1. ATAZANAVIR [Suspect]
     Indication: HIV INFECTION
     Route: 048
     Dates: start: 20041012
  2. RITONAVIR [Suspect]
     Indication: HIV INFECTION
     Dosage: INTERRUPTED 07-DEC-2004
     Route: 048
     Dates: start: 20041012
  3. STAVUDINE [Concomitant]
     Dates: start: 20041012, end: 20041207
  4. DIDANOSINE [Concomitant]
     Dosage: ONCE DAILY
     Dates: start: 20041012, end: 20041207
  5. ENFUVIRTIDE [Concomitant]
     Route: 058
     Dates: start: 20041012, end: 20041207
  6. TRIMETHOPRIM + SULFAMETHOXAZOLE [Concomitant]
     Dates: start: 20041012, end: 20041207

REACTIONS (7)
  - BLOOD BILIRUBIN INCREASED [None]
  - BLOOD BILIRUBIN UNCONJUGATED INCREASED [None]
  - BLOOD CHOLINESTERASE INCREASED [None]
  - BLOOD CREATINE PHOSPHOKINASE MB INCREASED [None]
  - BLOOD TRIGLYCERIDES INCREASED [None]
  - EMPHYSEMA [None]
  - PERICARDITIS [None]
